FAERS Safety Report 15385608 (Version 1)
Quarter: 2018Q3

REPORT INFORMATION
  Report Type: Spontaneous
  Country: JP (occurrence: JP)
  Receive Date: 20180914
  Receipt Date: 20180914
  Transmission Date: 20181010
  Serious: Yes (Other)
  Sender: FDA-Public Use
  Company Number: JP-MYLANLABS-2018M1067185

PATIENT
  Age: 44 Year
  Sex: Female

DRUGS (11)
  1. CALCIUM FOLINATE [Suspect]
     Active Substance: LEUCOVORIN CALCIUM
     Indication: COLON CANCER METASTATIC
     Dosage: ADMINISTERED IN 7 CYCLES, FOLFIRI REGIMEN
     Route: 065
     Dates: start: 201601
  2. IRINOTECAN [Suspect]
     Active Substance: IRINOTECAN
     Indication: COLON CANCER METASTATIC
     Dosage: ADMINISTERED IN 7 CYCLES, FOLFIRI REGIMEN
     Route: 065
     Dates: start: 201601
  3. BEVACIZUMAB. [Suspect]
     Active Substance: BEVACIZUMAB
     Indication: COLON CANCER METASTATIC
     Dosage: ADMINISTERED IN 8 CYCLES, MFOLFOX6 REGIMEN
     Route: 065
     Dates: start: 201606
  4. FOLINIC ACID [Suspect]
     Active Substance: LEUCOVORIN
     Indication: COLON CANCER METASTATIC
     Dosage: ADMINISTERED IN 8 CYCLES, MFOLFOX6 REGIMEN
     Route: 065
     Dates: start: 201606
  5. OXALIPLATIN. [Suspect]
     Active Substance: OXALIPLATIN
     Dosage: ADMINISTERED IN 8 CYCLES, MFOLFOX6 REGIMEN
     Route: 065
     Dates: start: 201606
  6. FOLINIC ACID [Suspect]
     Active Substance: LEUCOVORIN
     Indication: COLON CANCER METASTATIC
     Dosage: XELOX REGIMEN
     Route: 065
     Dates: start: 201505
  7. PANITUMUMAB [Suspect]
     Active Substance: PANITUMUMAB
     Indication: COLON CANCER METASTATIC
     Dosage: ADMINISTERED IN 7 CYCLES
     Route: 065
     Dates: start: 201601
  8. CAPECITABINE. [Suspect]
     Active Substance: CAPECITABINE
     Indication: COLON CANCER METASTATIC
     Dosage: XELOX REGIMEN
     Route: 065
     Dates: start: 201505
  9. FLUOROURACIL. [Suspect]
     Active Substance: FLUOROURACIL
     Indication: COLON CANCER METASTATIC
     Dosage: ADMINISTERED IN 7 CYCLES, FOLFIRI REGIMEN
     Route: 065
     Dates: start: 201601
  10. FLUOROURACIL. [Suspect]
     Active Substance: FLUOROURACIL
     Indication: COLON CANCER METASTATIC
     Dosage: ADMINISTERED IN 8 CYCLES, MFOLFOX6 REGIMEN
     Route: 065
     Dates: start: 201606
  11. OXALIPLATIN. [Suspect]
     Active Substance: OXALIPLATIN
     Indication: COLON CANCER METASTATIC
     Dosage: XELOX REGIMEN
     Route: 065
     Dates: start: 201505

REACTIONS (5)
  - Posterior reversible encephalopathy syndrome [Recovering/Resolving]
  - Reversible cerebral vasoconstriction syndrome [Recovering/Resolving]
  - Hemiparesis [Recovering/Resolving]
  - Hypertension [Recovered/Resolved]
  - Cerebral infarction [Recovering/Resolving]

NARRATIVE: CASE EVENT DATE: 201609
